FAERS Safety Report 10289004 (Version 1)
Quarter: 2014Q3

REPORT INFORMATION
  Report Type: Spontaneous
  Country: JP (occurrence: JP)
  Receive Date: 20140709
  Receipt Date: 20140709
  Transmission Date: 20150326
  Serious: Yes (Hospitalization)
  Sender: FDA-Public Use
  Company Number: JP-ABBVIE-14P-087-1257714-00

PATIENT
  Age: 73 Year
  Sex: Female

DRUGS (5)
  1. TRICOR [Suspect]
     Active Substance: FENOFIBRATE
     Dosage: 2 CAPSULES OF 67 MG
     Dates: start: 200604
  2. TRICOR [Suspect]
     Active Substance: FENOFIBRATE
     Indication: PRODUCT USED FOR UNKNOWN INDICATION
     Route: 048
     Dates: end: 20140609
  3. CANDESARTAN CILEXETIL. [Concomitant]
     Active Substance: CANDESARTAN CILEXETIL
     Dates: start: 20140412, end: 20140609
  4. CANDESARTAN CILEXETIL. [Concomitant]
     Active Substance: CANDESARTAN CILEXETIL
     Indication: HYPERTENSION
     Dosage: SOMETIMES
     Route: 048
     Dates: start: 20111206, end: 20140411
  5. PRANOPROFEN [Concomitant]
     Active Substance: PRANOPROFEN
     Indication: PAIN
     Route: 048
     Dates: start: 20060530, end: 20140601

REACTIONS (1)
  - Pneumonitis [Recovered/Resolved]

NARRATIVE: CASE EVENT DATE: 20140609
